FAERS Safety Report 26117467 (Version 1)
Quarter: 2025Q4

REPORT INFORMATION
  Report Type: Spontaneous
  Country: GB (occurrence: None)
  Receive Date: 20251203
  Receipt Date: 20251203
  Transmission Date: 20260118
  Serious: Yes (Other)
  Sender: ORGANON
  Company Number: None

PATIENT
  Age: 23 Year
  Sex: Female
  Weight: 92 kg

DRUGS (2)
  1. MIRTAZAPINE [Suspect]
     Active Substance: MIRTAZAPINE
     Dosage: ONE TO BE TAKEN AT NIGHT
     Dates: start: 20250730
  2. MIRTAZAPINE [Concomitant]
     Active Substance: MIRTAZAPINE
     Dosage: ONE TO BE TAKEN AT NIGHT
     Dates: start: 20250730

REACTIONS (6)
  - Glaucoma [Unknown]
  - Ocular hyperaemia [Unknown]
  - Eye pain [Unknown]
  - Vomiting [Unknown]
  - Nausea [Unknown]
  - Diarrhoea [Unknown]

NARRATIVE: CASE EVENT DATE: 20250801
